FAERS Safety Report 4933076-3 (Version None)
Quarter: 2006Q1

REPORT INFORMATION
  Report Type: 
  Country: None (occurrence: None)
  Receive Date: 20060302
  Receipt Date: 20060302
  Transmission Date: 20060701
  Serious: Yes (Hospitalization)
  Sender: FDA-Public Use
  Company Number: None

PATIENT
  Age: 28 Year
  Sex: Female

DRUGS (1)
  1. MEPERIDINE [Suspect]
     Indication: PANCREATITIS ACUTE
     Dosage: 10MG/H BASAL 20MG/8MIN IV
     Route: 042

REACTIONS (1)
  - GRAND MAL CONVULSION [None]
